FAERS Safety Report 9156959 (Version 1)
Quarter: 2013Q1

REPORT INFORMATION
  Report Type: Spontaneous
  Country: US (occurrence: None)
  Receive Date: 20130308
  Receipt Date: 20130308
  Transmission Date: 20140127
  Serious: Yes (Life-Threatening, Hospitalization)
  Sender: FDA-Public Use
  Company Number: None

PATIENT
  Age: 74 Year
  Sex: Male
  Weight: 88.45 kg

DRUGS (3)
  1. XARELTO [Suspect]
     Indication: ANTICOAGULANT THERAPY
  2. XARELTO [Suspect]
     Indication: CARDIAC DISORDER
  3. ALEVE [Suspect]
     Indication: ARTHRALGIA

REACTIONS (5)
  - Gastrointestinal haemorrhage [None]
  - Blood pressure decreased [None]
  - Blood count abnormal [None]
  - Ulcer haemorrhage [None]
  - Loss of consciousness [None]
